FAERS Safety Report 11581169 (Version 1)
Quarter: 2015Q4

REPORT INFORMATION
  Report Type: Spontaneous
  Country: US (occurrence: US)
  Receive Date: 20151001
  Receipt Date: 20151001
  Transmission Date: 20160304
  Serious: No
  Sender: FDA-Public Use
  Company Number: US-ROCHE-694080

PATIENT
  Age: 65 Year
  Sex: Male
  Weight: 86.2 kg

DRUGS (9)
  1. REYATAZ [Concomitant]
     Active Substance: ATAZANAVIR SULFATE
     Route: 065
  2. TAMSULOSIN [Concomitant]
     Active Substance: TAMSULOSIN
     Route: 065
  3. RIBAVIRIN. [Suspect]
     Active Substance: RIBAVIRIN
     Indication: HEPATITIS C
     Route: 048
  4. ACYCLOVIR. [Concomitant]
     Active Substance: ACYCLOVIR
     Route: 065
  5. RIBAVIRIN. [Suspect]
     Active Substance: RIBAVIRIN
     Route: 048
     Dates: start: 200911, end: 20100507
  6. TRUVADA [Concomitant]
     Active Substance: EMTRICITABINE\TENOFOVIR DISOPROXIL FUMARATE
     Route: 065
  7. NORVASC [Concomitant]
     Active Substance: AMLODIPINE BESYLATE
     Route: 065
  8. PEGASYS [Suspect]
     Active Substance: PEGINTERFERON ALFA-2A
     Indication: HEPATITIS C
     Route: 058
     Dates: start: 20090512, end: 20100507
  9. NORVIR [Concomitant]
     Active Substance: RITONAVIR
     Route: 065

REACTIONS (5)
  - Anaemia [Not Recovered/Not Resolved]
  - Anxiety [Recovering/Resolving]
  - White blood cell count decreased [Not Recovered/Not Resolved]
  - Depression [Recovering/Resolving]
  - Abdominal mass [Not Recovered/Not Resolved]

NARRATIVE: CASE EVENT DATE: 200910
